FAERS Safety Report 25321371 (Version 2)
Quarter: 2025Q3

REPORT INFORMATION
  Report Type: Report from Study
  Country: US (occurrence: US)
  Receive Date: 20250515
  Receipt Date: 20250803
  Transmission Date: 20251021
  Serious: Yes (Hospitalization)
  Sender: ALEXION PHARMACEUTICALS
  Company Number: US-AstraZeneca-CH-00869776A

PATIENT
  Age: 82 Year
  Sex: Female
  Weight: 79.02 kg

DRUGS (1)
  1. ACALABRUTINIB [Suspect]
     Active Substance: ACALABRUTINIB
     Indication: Colon cancer
     Dosage: 100 MILLIGRAM, BID
     Dates: start: 20190731

REACTIONS (8)
  - Blood glucose decreased [Unknown]
  - Fall [Unknown]
  - Haemorrhage [Unknown]
  - Gastroenteritis radiation [Unknown]
  - Fluid retention [Unknown]
  - Limb discomfort [Unknown]
  - Swelling [Unknown]
  - Oedema [Unknown]

NARRATIVE: CASE EVENT DATE: 20250101
